FAERS Safety Report 8234219-9 (Version None)
Quarter: 2012Q1

REPORT INFORMATION
  Report Type: 
  Country: None (occurrence: None)
  Receive Date: 20120326
  Receipt Date: 20120312
  Transmission Date: 20120608
  Serious: Yes (Death, Life-Threatening, Hospitalization, Other)
  Sender: FDA-Public Use
  Company Number: US-SANOFI-AVENTIS-2012SA017143

PATIENT
  Age: 74 Year
  Sex: Male
  Weight: 81.2 kg

DRUGS (19)
  1. PREDNISONE [Suspect]
     Route: 048
     Dates: start: 20120202, end: 20120215
  2. LEVOFLOXACIN [Concomitant]
     Dates: start: 20120224, end: 20120225
  3. PREVACID [Concomitant]
  4. TAMSULOSIN HCL [Concomitant]
  5. LASIX [Suspect]
     Indication: CARDIAC DISORDER
     Dates: end: 20120222
  6. MATULANE [Suspect]
     Route: 048
     Dates: start: 20120202, end: 20120215
  7. SPIRONOLACTONE [Suspect]
     Indication: CARDIAC DISORDER
     Dates: end: 20120222
  8. COREG [Suspect]
     Indication: CARDIAC DISORDER
     Dates: end: 20120222
  9. KLOR-CON [Concomitant]
  10. FOLIC ACID [Concomitant]
  11. MULTI-VITAMINS [Concomitant]
  12. BLEOMYCIN SULFATE [Concomitant]
  13. DACARBAZINE [Concomitant]
  14. CYTOXAN [Suspect]
     Route: 042
     Dates: start: 20120209, end: 20120216
  15. LISINOPRIL [Suspect]
     Indication: CARDIAC DISORDER
     Dates: end: 20120222
  16. LIDOCAINE [Concomitant]
  17. ZOFRAN [Concomitant]
  18. VINBLASTINE SULFATE [Suspect]
     Route: 042
     Dates: start: 20120209, end: 20120216
  19. DOXORUBICIN HCL [Concomitant]

REACTIONS (15)
  - CARDIAC FAILURE [None]
  - DIARRHOEA [None]
  - FALL [None]
  - ANAEMIA [None]
  - CARDIAC ARREST [None]
  - LETHARGY [None]
  - HYPOTENSION [None]
  - NEUTROPENIC SEPSIS [None]
  - EXCORIATION [None]
  - MENTAL STATUS CHANGES [None]
  - COUGH [None]
  - PYREXIA [None]
  - TACHYCARDIA [None]
  - ATRIAL FIBRILLATION [None]
  - NEUTROPENIA [None]
